FAERS Safety Report 9677317 (Version 2)
Quarter: 2013Q4

REPORT INFORMATION
  Report Type: Spontaneous
  Country: US (occurrence: US)
  Receive Date: 20131108
  Receipt Date: 20131226
  Transmission Date: 20140711
  Serious: Yes (Other)
  Sender: FDA-Public Use
  Company Number: US-PFIZER INC-2013317679

PATIENT
  Age: 64 Year
  Sex: Female
  Weight: 66.67 kg

DRUGS (1)
  1. VENLAFAXINE HCL [Suspect]
     Indication: DEPRESSION
     Dosage: 0.75 MG, DAILY
     Dates: start: 2011, end: 2011

REACTIONS (4)
  - Mental impairment [Unknown]
  - Headache [Unknown]
  - Anxiety [Unknown]
  - Nervousness [Unknown]
